FAERS Safety Report 24087504 (Version 1)
Quarter: 2024Q3

REPORT INFORMATION
  Report Type: Spontaneous
  Country: DE (occurrence: DE)
  Receive Date: 20240714
  Receipt Date: 20240714
  Transmission Date: 20241016
  Serious: Yes (Hospitalization)
  Sender: AIMMUNE
  Company Number: DE-AIMMUNE THERAPEUTICS, INC.-2024AIMT01066

PATIENT

DRUGS (3)
  1. PALFORZIA [Suspect]
     Active Substance: PEANUT
     Indication: Food allergy
     Dosage: IDE (0.5MG-6MG),  ONCE
     Route: 048
  2. PALFORZIA [Suspect]
     Active Substance: PEANUT
     Dosage: UNK DOSE
     Route: 065
  3. PALFORZIA [Suspect]
     Active Substance: PEANUT
     Dosage: UNK DOSE, ONCE, LAST DOSE PRIOR TO EVENTS
     Route: 065

REACTIONS (3)
  - Hospitalisation [Unknown]
  - Product dose omission in error [Unknown]
  - Product communication issue [Unknown]
